FAERS Safety Report 8012266-X (Version None)
Quarter: 2011Q4

REPORT INFORMATION
  Report Type: 
  Country: None (occurrence: None)
  Receive Date: 20111228
  Receipt Date: 20111220
  Transmission Date: 20120403
  Serious: Yes (Hospitalization, Other)
  Sender: FDA-Public Use
  Company Number: US-ELI_LILLY_AND_COMPANY-US201112006647

PATIENT
  Sex: Female

DRUGS (1)
  1. ALIMTA [Suspect]
     Dosage: 725 MG, UNKNOWN
     Route: 065
     Dates: start: 20100928

REACTIONS (2)
  - HOSPITALISATION [None]
  - HOSPICE CARE [None]
